FAERS Safety Report 6045461-X (Version None)
Quarter: 2009Q1

REPORT INFORMATION
  Report Type: 
  Country: None (occurrence: None)
  Receive Date: 20090121
  Receipt Date: 20071126
  Transmission Date: 20090719
  Serious: Yes (Hospitalization, Other)
  Sender: FDA-Public Use
  Company Number: US-ASTRAZENECA-2007UW27585

PATIENT
  Age: 64 Year
  Sex: Female
  Weight: 68 kg

DRUGS (52)
  1. SEROQUEL [Suspect]
     Indication: ANXIETY
     Route: 048
     Dates: start: 20031121
  2. SEROQUEL [Suspect]
     Route: 048
     Dates: start: 20040511
  3. HYDROCODONE BITARTRATE [Concomitant]
     Dosage: 5/500
     Route: 048
     Dates: start: 19990101
  4. LEXAPRO [Concomitant]
     Dates: start: 20031121
  5. METHOCARBAMOL [Concomitant]
  6. CARISOPRODOL [Concomitant]
     Dates: start: 19990101
  7. ALPRAZOLAM [Concomitant]
     Dates: start: 20020919
  8. PROMETHAZINE [Concomitant]
     Dates: start: 20040123
  9. BISACODYL [Concomitant]
     Route: 048
     Dates: start: 20040207
  10. SKELAXIN [Concomitant]
     Dates: start: 20040217
  11. ZYVOX [Concomitant]
     Dates: start: 20040413
  12. LORAZEPAM [Concomitant]
     Dates: start: 19991120
  13. PROPOXYPHENE HYDROCHLORIDE [Concomitant]
     Dates: start: 19990703
  14. PANGESTYME [Concomitant]
     Route: 048
     Dates: start: 20040506
  15. CELEXA [Concomitant]
     Dates: start: 20040511
  16. CYCLOBENZAPRINE HCL [Concomitant]
     Dates: start: 20040721
  17. OXYCONTIN [Concomitant]
  18. FOSINOPRIL SODIUM [Concomitant]
     Dates: start: 20040804
  19. ALBUTEROL [Concomitant]
     Dates: start: 19990802
  20. DURAGESIC-100 [Concomitant]
     Dosage: 25 MCG/HR
     Dates: start: 20040805
  21. FUROSEMIDE [Concomitant]
     Dates: start: 20040823
  22. NEURONTIN [Concomitant]
     Route: 048
     Dates: start: 20040901
  23. SELENIUM [Concomitant]
     Dosage: 2.5%
     Dates: start: 20040923
  24. ADVAIR DISKUS 100/50 [Concomitant]
     Dosage: 250/50 MCG
     Dates: start: 20040924
  25. ACETAMINOPHEN [Concomitant]
     Route: 048
     Dates: start: 20040927
  26. METRONIDAZOLE [Concomitant]
     Dates: start: 20041016
  27. MORPHINE [Concomitant]
     Dates: start: 20040916
  28. COMBIVENT [Concomitant]
     Dates: start: 20041016
  29. NAPROXEN SODIUM [Concomitant]
     Route: 048
     Dates: start: 20050216
  30. TRAZODONE HCL [Concomitant]
     Route: 048
     Dates: start: 19990804
  31. PREVACID [Concomitant]
     Route: 048
     Dates: start: 20050321
  32. PREDNISONE [Concomitant]
     Dates: start: 20050322
  33. KETOROLAC TROMETHAMINE [Concomitant]
     Dates: start: 20050411
  34. MECLIZINE [Concomitant]
     Dates: start: 20050520
  35. DILTIAZEM [Concomitant]
     Dates: start: 20050613
  36. VOPAC [Concomitant]
     Dates: start: 20050709
  37. NITROGLYCERIN [Concomitant]
     Route: 048
     Dates: start: 20050729
  38. METHADONE HCL [Concomitant]
     Dates: start: 20050802
  39. LUNESTA [Concomitant]
     Dates: start: 20050802
  40. PROCTOSOL [Concomitant]
     Dosage: 2.5%
     Dates: start: 20050819
  41. TRIAMTERENE [Concomitant]
     Dosage: 37.5/25
     Dates: start: 20050919
  42. TRIMETHOBENZAMIDE [Concomitant]
     Dates: start: 20050926
  43. NORVASC [Concomitant]
     Dates: start: 20060403
  44. SPIRIVA [Concomitant]
     Dates: start: 20060708
  45. AMBIEN [Concomitant]
     Dates: start: 20060726
  46. DIPHENHYDRAMINE HCL [Concomitant]
     Dates: start: 20050905
  47. PHENAZOPYRIDINE HCL TAB [Concomitant]
     Dates: start: 20060928
  48. CYMBALTA [Concomitant]
     Dates: start: 20061128
  49. HYDROCHLOROTHIAZIDE [Concomitant]
     Dates: start: 20061222
  50. ARICEPT [Concomitant]
     Dates: start: 20061228
  51. DETROL LA [Concomitant]
     Dates: start: 20061229
  52. OXYGEN [Concomitant]
     Dosage: 2 LITERS PER MINUTE

REACTIONS (36)
  - ACUTE RESPIRATORY FAILURE [None]
  - ANAL FISSURE [None]
  - ARTERIOSCLEROSIS CORONARY ARTERY [None]
  - ATELECTASIS [None]
  - BACTERAEMIA [None]
  - CARDIAC FAILURE CONGESTIVE [None]
  - CARDIOMEGALY [None]
  - CAROTID ARTERY STENOSIS [None]
  - CEREBRAL ISCHAEMIA [None]
  - CHRONIC OBSTRUCTIVE PULMONARY DISEASE [None]
  - CHRONIC RESPIRATORY FAILURE [None]
  - CLOSTRIDIUM DIFFICILE COLITIS [None]
  - CONVULSION [None]
  - FALL [None]
  - HAEMORRHOIDS [None]
  - HYPONATRAEMIA [None]
  - HYPOTENSION [None]
  - JOINT INJURY [None]
  - LIVER FUNCTION TEST ABNORMAL [None]
  - METABOLIC ALKALOSIS [None]
  - MYOCARDIAL INFARCTION [None]
  - NON-CARDIAC CHEST PAIN [None]
  - PANCREATIC DISORDER [None]
  - PANCREATITIS [None]
  - PANCREATITIS ACUTE [None]
  - PANCREATOBILIARY SPHINCTEROTOMY [None]
  - PERICARDIAL EFFUSION [None]
  - PERSONALITY DISORDER [None]
  - POLYMEDICATION [None]
  - PULMONARY HYPERTENSION [None]
  - SCHIZOAFFECTIVE DISORDER [None]
  - SKIN CANCER [None]
  - STAPHYLOCOCCAL INFECTION [None]
  - SYNCOPE [None]
  - TYPE 1 DIABETES MELLITUS [None]
  - UPPER LIMB FRACTURE [None]
